FAERS Safety Report 9242160 (Version 1)
Quarter: 2013Q2

REPORT INFORMATION
  Report Type: Spontaneous
  Country: BR (occurrence: BR)
  Receive Date: 20130419
  Receipt Date: 20130419
  Transmission Date: 20140414
  Serious: Yes (Other)
  Sender: FDA-Public Use
  Company Number: BR-ROCHE-1216267

PATIENT
  Sex: Male
  Weight: 103 kg

DRUGS (1)
  1. AVASTIN [Suspect]
     Indication: BRAIN NEOPLASM
     Route: 042
     Dates: start: 20120914

REACTIONS (1)
  - Fat necrosis [Not Recovered/Not Resolved]
